FAERS Safety Report 9559540 (Version 2)
Quarter: 2013Q4

REPORT INFORMATION
  Report Type: Spontaneous
  Country: US (occurrence: None)
  Receive Date: 20130925
  Receipt Date: 20131122
  Transmission Date: 20140711
  Serious: Yes (Other)
  Sender: FDA-Public Use
  Company Number: SYM-2013-10799

PATIENT
  Age: 90 Year
  Sex: Female

DRUGS (1)
  1. XENAZINE [Suspect]
     Indication: CHOREA
     Dosage: 3 IN 1 D
     Route: 048
     Dates: start: 20130905

REACTIONS (4)
  - Weight decreased [None]
  - Blindness unilateral [None]
  - Headache [None]
  - Hearing impaired [None]
